FAERS Safety Report 10012942 (Version 3)
Quarter: 2014Q3

REPORT INFORMATION
  Report Type: Spontaneous
  Country: GB (occurrence: GB)
  Receive Date: 20140314
  Receipt Date: 20140929
  Transmission Date: 20150326
  Serious: Yes (Death)
  Sender: FDA-Public Use
  Company Number: PHHY2013GB130070

PATIENT
  Age: 86 Year
  Sex: Female
  Weight: 70 kg

DRUGS (11)
  1. BRINZOLAMIDE [Concomitant]
     Active Substance: BRINZOLAMIDE
     Indication: GLAUCOMA
  2. MAGNESIUM GLYCEROPHOSPHATE [Concomitant]
     Active Substance: MAGNESIUM GLYCEROPHOSPHATE
     Indication: SEPSIS
  3. TAZOBACTAM [Concomitant]
     Active Substance: TAZOBACTAM
     Indication: SEPSIS
     Dosage: 4.5 G
     Route: 042
     Dates: start: 20131018, end: 20131025
  4. PIPERACILLIN AND TAZOBACTAM [Suspect]
     Active Substance: PIPERACILLIN SODIUM\TAZOBACTAM SODIUM
     Indication: LIVER ABSCESS
     Dosage: 4.5 G, UNK
     Route: 042
     Dates: start: 20131018, end: 20131025
  5. PIPERACILLIN AND TAZOBACTAM [Suspect]
     Active Substance: PIPERACILLIN SODIUM\TAZOBACTAM SODIUM
     Indication: SEPSIS
  6. LATANOPROST. [Concomitant]
     Active Substance: LATANOPROST
     Indication: GLAUCOMA
  7. BRINZOLAMIDE [Concomitant]
     Active Substance: BRINZOLAMIDE
     Indication: SEPSIS
     Dosage: 1 GTT QD
     Route: 061
  8. LATANOPROST. [Concomitant]
     Active Substance: LATANOPROST
     Indication: SEPSIS
     Dosage: 1 GTT, QD
     Route: 061
     Dates: start: 20131018, end: 20131025
  9. TAZOBACTAM [Concomitant]
     Active Substance: TAZOBACTAM
     Indication: LIVER ABSCESS
  10. METRONIDAZOLE. [Suspect]
     Active Substance: METRONIDAZOLE
     Indication: LIVER ABSCESS
     Dates: start: 20131025, end: 20131025
  11. MAGNESIUM GLYCEROPHOSPHATE [Concomitant]
     Active Substance: MAGNESIUM GLYCEROPHOSPHATE
     Indication: BLOOD MAGNESIUM DECREASED
     Dosage: 4 MMOL, UNK
     Route: 048
     Dates: start: 20131018, end: 20131025

REACTIONS (2)
  - Anaphylactic reaction [Fatal]
  - Drug administration error [Unknown]

NARRATIVE: CASE EVENT DATE: 20131025
